FAERS Safety Report 12259250 (Version 1)
Quarter: 2016Q2

REPORT INFORMATION
  Report Type: Spontaneous
  Country: US (occurrence: US)
  Receive Date: 20160412
  Receipt Date: 20160412
  Transmission Date: 20160815
  Serious: No
  Sender: FDA-Public Use
  Company Number: US-SA-2015SA085524

PATIENT
  Sex: Female

DRUGS (1)
  1. ALLEGRA ALLERGY [Suspect]
     Active Substance: FEXOFENADINE HYDROCHLORIDE
     Indication: MULTIPLE ALLERGIES
     Dosage: PRODUCT START DATE- A MONTH
     Route: 048

REACTIONS (5)
  - Hypoacusis [Unknown]
  - Ear congestion [Unknown]
  - Throat irritation [Unknown]
  - Nasal pruritus [Unknown]
  - Nasal congestion [Unknown]
